FAERS Safety Report 4465001-6 (Version None)
Quarter: 2004Q4

REPORT INFORMATION
  Report Type: 
  Country: None (occurrence: None)
  Receive Date: 20041004
  Receipt Date: 20040607
  Transmission Date: 20050328
  Serious: No
  Sender: FDA-Public Use
  Company Number: 374007

PATIENT
  Age: 40 Year
  Sex: Male

DRUGS (6)
  1. COREG [Suspect]
     Dosage: 6.25MG TWICE PER DAY
     Route: 048
     Dates: start: 20040526
  2. LASIX [Concomitant]
  3. POTASSIUM SUPPLEMENT [Concomitant]
  4. PLAVIX [Concomitant]
  5. INSULIN [Concomitant]
  6. WELLBUTRIN [Concomitant]

REACTIONS (1)
  - INSOMNIA [None]
